FAERS Safety Report 8082870-1 (Version None)
Quarter: 2012Q1

REPORT INFORMATION
  Report Type: 
  Country: None (occurrence: None)
  Receive Date: 20120127
  Receipt Date: 20110125
  Transmission Date: 20120608
  Serious: Yes (Other)
  Sender: FDA-Public Use
  Company Number: US-ABBOTT-11P-163-0700533-00

PATIENT
  Sex: Female

DRUGS (2)
  1. HUMIRA [Suspect]
     Indication: RHEUMATOID ARTHRITIS
     Dates: start: 20100101
  2. HUMIRA [Suspect]

REACTIONS (7)
  - SURGERY [None]
  - NIGHT SWEATS [None]
  - BLOOD PRESSURE INCREASED [None]
  - FEELING HOT [None]
  - ARTHRALGIA [None]
  - ANXIETY [None]
  - VAGINAL INFECTION [None]
